FAERS Safety Report 13040521 (Version 1)
Quarter: 2016Q4

REPORT INFORMATION
  Report Type: Spontaneous
  Country: TR (occurrence: US)
  Receive Date: 20161219
  Receipt Date: 20161219
  Transmission Date: 20170207
  Serious: Yes (Other)
  Sender: FDA-Public Use
  Company Number: None

PATIENT
  Age: 22 Year
  Sex: Male
  Weight: 95 kg

DRUGS (1)
  1. TOFRANIL [Suspect]
     Active Substance: IMIPRAMINE HYDROCHLORIDE
     Indication: DRUG THERAPY
     Route: 048
     Dates: start: 19931208, end: 19951214

REACTIONS (2)
  - Infertility [None]
  - Gynaecomastia [None]

NARRATIVE: CASE EVENT DATE: 19991205
